FAERS Safety Report 25800057 (Version 4)
Quarter: 2025Q4

REPORT INFORMATION
  Report Type: Report from Study
  Country: EU (occurrence: EU)
  Receive Date: 20250914
  Receipt Date: 20251118
  Transmission Date: 20260117
  Serious: Yes (Hospitalization)
  Sender: ABBVIE
  Company Number: EU-ABBVIE-6454763

PATIENT
  Age: 65 Year
  Sex: Female

DRUGS (4)
  1. FOSCARBIDOPA\FOSLEVODOPA [Suspect]
     Active Substance: FOSCARBIDOPA\FOSLEVODOPA
     Indication: Parkinson^s disease
     Dosage: CRN: 0.28 ML/H, CR: 0.58 ML/H, CRH: 0.61 ML/H, ED: 0.30 ML.
     Route: 058
     Dates: start: 20250519
  2. FOSCARBIDOPA\FOSLEVODOPA [Suspect]
     Active Substance: FOSCARBIDOPA\FOSLEVODOPA
     Route: 058
  3. INFLUENZA VIRUS VACCINE QUADRIVALENT TYPE A+B [Concomitant]
     Active Substance: INFLUENZA VIRUS VACCINE QUADRIVALENT TYPE A+B
     Indication: Product used for unknown indication
     Dates: start: 20251014
  4. Comirnaty [Concomitant]
     Indication: Product used for unknown indication
     Dates: start: 20251014

REACTIONS (3)
  - Drug abuse [Not Recovered/Not Resolved]
  - Hallucination [Unknown]
  - Mental disorder [Unknown]

NARRATIVE: CASE EVENT DATE: 20250101
